FAERS Safety Report 6983578-3 (Version None)
Quarter: 2010Q3

REPORT INFORMATION
  Report Type: 
  Country: None (occurrence: None)
  Receive Date: 20100914
  Receipt Date: 20081029
  Transmission Date: 20110219
  Serious: No
  Sender: FDA-Public Use
  Company Number: US-WYE-H06063808

PATIENT
  Age: 45 Year
  Sex: Male
  Weight: 77.18 kg

DRUGS (2)
  1. ADVIL LIQUI-GELS [Suspect]
     Indication: HEADACHE
     Dosage: 1 LIQUI-GEL THREE TIMES DAILY AS NEEDED
     Route: 048
     Dates: start: 20080901, end: 20080917
  2. ADVIL LIQUI-GELS [Suspect]
     Indication: PAIN

REACTIONS (5)
  - DRUG INEFFECTIVE [None]
  - DYSGEUSIA [None]
  - PRODUCT QUALITY ISSUE [None]
  - RETCHING [None]
  - THROAT IRRITATION [None]
